FAERS Safety Report 7884436-2 (Version None)
Quarter: 2011Q4

REPORT INFORMATION
  Report Type: 
  Country: None (occurrence: None)
  Receive Date: 20111102
  Receipt Date: 20110921
  Transmission Date: 20120403
  Serious: No
  Sender: FDA-Public Use
  Company Number: US-ASTRAZENECA-2011SE42816

PATIENT
  Age: 62 Year
  Sex: Male

DRUGS (1)
  1. VANDETANIB [Suspect]
     Indication: THYROID CANCER
     Route: 048
     Dates: start: 20110707

REACTIONS (2)
  - RASH [None]
  - BLOOD URINE PRESENT [None]
